FAERS Safety Report 5217795-X (Version None)
Quarter: 2007Q1

REPORT INFORMATION
  Report Type: 
  Country: None (occurrence: None)
  Receive Date: 20061130
  Receipt Date: 20060901
  Transmission Date: 20070707
  Serious: Yes (Hospitalization)
  Sender: FDA-Public Use
  Company Number: US200608005910

PATIENT
  Age: 37 Year
  Sex: Female
  Weight: 104.3 kg

DRUGS (4)
  1. ZYPREXA [Suspect]
     Dates: start: 20040101, end: 20051201
  2. SEROQUEL /UNK/ (QUETIAPINE FUMARATE) [Concomitant]
  3. GEODON [Concomitant]
  4. TOPIMAX (TOPIRAMATE) [Concomitant]

REACTIONS (7)
  - BLOOD CHOLESTEROL INCREASED [None]
  - CHEST PAIN [None]
  - DIABETES MELLITUS [None]
  - DRUG EXPOSURE DURING PREGNANCY [None]
  - HYPERTENSION [None]
  - METABOLIC DISORDER [None]
  - OBESITY [None]
